FAERS Safety Report 23849439 (Version 1)
Quarter: 2024Q2

REPORT INFORMATION
  Report Type: Report from Study
  Country: CA (occurrence: CA)
  Receive Date: 20240513
  Receipt Date: 20240513
  Transmission Date: 20240715
  Serious: Yes (Other)
  Sender: FDA-Public Use
  Company Number: CA-002147023-NVSC2022CA231013

PATIENT
  Sex: Male

DRUGS (3)
  1. HYRIMOZ [Suspect]
     Active Substance: ADALIMUMAB-ADAZ
     Dosage: 40 MG, QW
     Route: 058
  2. HYRIMOZ [Suspect]
     Active Substance: ADALIMUMAB-ADAZ
     Dosage: 40 MG, Q2W
     Route: 058
  3. HYRIMOZ [Suspect]
     Active Substance: ADALIMUMAB-ADAZ
     Indication: Crohn^s disease
     Dosage: 40 MG
     Route: 058
     Dates: start: 20220218

REACTIONS (12)
  - Uveitis [Unknown]
  - Gastrointestinal stenosis [Unknown]
  - Diverticulum [Unknown]
  - Diarrhoea [Recovered/Resolved]
  - Proctalgia [Unknown]
  - Product dose omission issue [Unknown]
  - Diarrhoea [Unknown]
  - Anorectal discomfort [Unknown]
  - Illness [Unknown]
  - Eye disorder [Unknown]
  - Erythema [Unknown]
  - Abdominal pain [Unknown]
